FAERS Safety Report 9602032 (Version 1)
Quarter: 2013Q4

REPORT INFORMATION
  Report Type: Spontaneous
  Country: IT (occurrence: None)
  Receive Date: 20131002
  Receipt Date: 20131002
  Transmission Date: 20140711
  Serious: Yes (Life-Threatening, Other)
  Sender: FDA-Public Use
  Company Number: AUR-APL-2013-08146

PATIENT
  Age: 81 Year
  Sex: Female

DRUGS (2)
  1. LEVOFLOXACIN [Suspect]
     Indication: PHLEBITIS SUPERFICIAL
     Dosage: 500 MG, 1 D), ORAL
     Route: 048
  2. ENOXAPARIN (ENOXAPARIN) [Concomitant]

REACTIONS (4)
  - Hypoglycaemia [None]
  - Unresponsive to stimuli [None]
  - Rales [None]
  - Oedema [None]
